FAERS Safety Report 13344343 (Version 2)
Quarter: 2017Q2

REPORT INFORMATION
  Report Type: Report from Study
  Country: US (occurrence: US)
  Receive Date: 20170317
  Receipt Date: 20170517
  Transmission Date: 20170830
  Serious: Yes (Other)
  Sender: FDA-Public Use
  Company Number: US-AMGEN-USASL2017037029

PATIENT
  Age: 75 Year
  Sex: Female

DRUGS (1)
  1. ENBREL [Suspect]
     Active Substance: ETANERCEPT
     Indication: RHEUMATOID ARTHRITIS
     Dosage: 50 MG, QWK
     Route: 065

REACTIONS (9)
  - Shoulder arthroplasty [Unknown]
  - Drug effect incomplete [Unknown]
  - Pain [Not Recovered/Not Resolved]
  - Cardiac operation [Unknown]
  - Musculoskeletal pain [Not Recovered/Not Resolved]
  - Atrial fibrillation [Unknown]
  - Cardiac disorder [Not Recovered/Not Resolved]
  - Hip arthroplasty [Unknown]
  - Mobility decreased [Unknown]
